FAERS Safety Report 26018902 (Version 1)
Quarter: 2025Q4

REPORT INFORMATION
  Report Type: Spontaneous
  Country: US (occurrence: US)
  Receive Date: 20251110
  Receipt Date: 20251110
  Transmission Date: 20260117
  Serious: No
  Sender: AMNEAL
  Company Number: US-AMNEAL PHARMACEUTICALS-2025-AMRX-00973

PATIENT
  Sex: Female

DRUGS (1)
  1. OXCARBAZEPINE [Suspect]
     Active Substance: OXCARBAZEPINE
     Indication: Product used for unknown indication
     Dosage: 300MG/5, 2X/DAY
     Route: 048

REACTIONS (2)
  - Liquid product physical issue [Unknown]
  - No adverse event [Unknown]
